FAERS Safety Report 9529886 (Version 1)
Quarter: 2013Q1

REPORT INFORMATION
  Report Type: Spontaneous
  Country: US (occurrence: None)
  Receive Date: 20130318
  Receipt Date: 20130318
  Transmission Date: 20140127
  Serious: Yes (Hospitalization)
  Sender: FDA-Public Use
  Company Number: 2012SP024271

PATIENT
  Sex: Male

DRUGS (1)
  1. PEGINTRON [Suspect]
     Indication: HEPATITIS C

REACTIONS (1)
  - White blood cell count decreased [None]
